FAERS Safety Report 8118710-1 (Version None)
Quarter: 2012Q1

REPORT INFORMATION
  Report Type: 
  Country: None (occurrence: None)
  Receive Date: 20120202
  Receipt Date: 20120120
  Transmission Date: 20120608
  Serious: Yes (Hospitalization, Other)
  Sender: FDA-Public Use
  Company Number: 2012-000289

PATIENT
  Age: 75 Year
  Sex: Female
  Weight: 74 kg

DRUGS (5)
  1. LASIX [Concomitant]
  2. ENALAPRIL MALEATE [Concomitant]
  3. OSCAL 500-D (CALCIUM, COLECALCIFEROL) [Concomitant]
  4. ACTONEL [Suspect]
     Indication: OSTEOARTHRITIS
     Dosage: 35 MG ONCE WEEKLY, ORAL ; 35 MG ONCE WEEKLY, ORAL
     Route: 048
     Dates: start: 20070101, end: 20111001
  5. ACTONEL [Suspect]
     Indication: OSTEOARTHRITIS
     Dosage: 35 MG ONCE WEEKLY, ORAL ; 35 MG ONCE WEEKLY, ORAL
     Route: 048
     Dates: start: 20111201

REACTIONS (9)
  - FALL [None]
  - PLEURAL EFFUSION [None]
  - HIP FRACTURE [None]
  - CHEST PAIN [None]
  - URINARY TRACT INFECTION [None]
  - SPINAL FRACTURE [None]
  - CARDIAC FAILURE [None]
  - AORTIC VALVE CALCIFICATION [None]
  - CARDIAC VALVE DISEASE [None]
